FAERS Safety Report 7741514-6 (Version None)
Quarter: 2011Q3

REPORT INFORMATION
  Report Type: 
  Country: None (occurrence: None)
  Receive Date: 20110909
  Receipt Date: 20110901
  Transmission Date: 20111222
  Serious: Yes (Hospitalization, Disabling)
  Sender: FDA-Public Use
  Company Number: US-MERCK-1105USA03429

PATIENT
  Age: 56 Year
  Sex: Female
  Weight: 70 kg

DRUGS (8)
  1. ALENDRONATE SODIUM [Suspect]
     Indication: OSTEOPOROSIS
     Route: 048
     Dates: start: 20080523, end: 20090605
  2. FLEXERIL [Concomitant]
     Indication: FIBROMYALGIA
     Route: 048
  3. VITAMIN E [Concomitant]
     Route: 065
     Dates: start: 19700101
  4. MELOXICAM [Concomitant]
     Indication: ARTHRITIS
     Route: 065
  5. VITA C [Concomitant]
     Route: 065
     Dates: start: 19750101
  6. TRIAMTERENE [Concomitant]
     Route: 065
  7. FOSAMAX [Suspect]
     Indication: OSTEOPOROSIS
     Route: 048
     Dates: start: 20050901, end: 20100803
  8. KLOR-CON [Concomitant]
     Indication: BLOOD POTASSIUM
     Route: 065

REACTIONS (28)
  - MYALGIA [None]
  - ANKLE FRACTURE [None]
  - LOWER LIMB FRACTURE [None]
  - INTERVERTEBRAL DISC PROTRUSION [None]
  - OCCULT BLOOD POSITIVE [None]
  - ASTHMA [None]
  - SCIATICA [None]
  - REFLUX GASTRITIS [None]
  - MUSCLE STRAIN [None]
  - FALL [None]
  - LUMBAR SPINAL STENOSIS [None]
  - HYPERTENSION [None]
  - PAIN IN EXTREMITY [None]
  - INTERVERTEBRAL DISC DEGENERATION [None]
  - DEVICE FAILURE [None]
  - HAEMORRHAGIC ANAEMIA [None]
  - MYOSITIS [None]
  - INCISION SITE HAEMATOMA [None]
  - DYSPHAGIA [None]
  - ATELECTASIS [None]
  - FOOT FRACTURE [None]
  - UPPER RESPIRATORY TRACT INFECTION [None]
  - DRY MOUTH [None]
  - FEMUR FRACTURE [None]
  - HYPOKALAEMIA [None]
  - LOW TURNOVER OSTEOPATHY [None]
  - BURSITIS [None]
  - GASTROOESOPHAGEAL REFLUX DISEASE [None]
